FAERS Safety Report 4873715-9 (Version None)
Quarter: 2006Q1

REPORT INFORMATION
  Report Type: 
  Country: None (occurrence: None)
  Receive Date: 20060104
  Receipt Date: 20060104
  Transmission Date: 20060701
  Serious: Yes (Life-Threatening, Hospitalization)
  Sender: FDA-Public Use
  Company Number: None

PATIENT
  Age: 59 Year
  Sex: Female
  Weight: 108 kg

DRUGS (1)
  1. VERAPAMIL [Suspect]
     Dates: start: 20050611, end: 20050611

REACTIONS (4)
  - ASPIRATION [None]
  - CARDIOVASCULAR DISORDER [None]
  - OVERDOSE [None]
  - RESPIRATORY DISORDER [None]
